FAERS Safety Report 25366967 (Version 1)
Quarter: 2025Q2

REPORT INFORMATION
  Report Type: Report from Study
  Country: CN (occurrence: CN)
  Receive Date: 20250528
  Receipt Date: 20250528
  Transmission Date: 20250716
  Serious: Yes (Hospitalization)
  Sender: TAKEDA
  Company Number: CN-TAKEDA-2025TUS022762

PATIENT
  Age: 52 Year
  Sex: Female

DRUGS (3)
  1. BRIGATINIB [Suspect]
     Active Substance: BRIGATINIB
     Indication: Lung neoplasm malignant
     Dosage: 180 MILLIGRAM, QD
  2. BRIGATINIB [Suspect]
     Active Substance: BRIGATINIB
     Dosage: 90 MILLIGRAM, QD
  3. LEVAMLODIPINE [Concomitant]
     Active Substance: LEVAMLODIPINE
     Indication: Hypertension
     Dosage: 2.5 MILLIGRAM, QD

REACTIONS (5)
  - Lung opacity [Unknown]
  - Hepatic steatosis [Unknown]
  - Urine analysis abnormal [Unknown]
  - Pulmonary calcification [Unknown]
  - Pleural thickening [Unknown]

NARRATIVE: CASE EVENT DATE: 20250219
